FAERS Safety Report 4783697-6 (Version None)
Quarter: 2005Q3

REPORT INFORMATION
  Report Type: 
  Country: None (occurrence: None)
  Receive Date: 20050927
  Receipt Date: 20050525
  Transmission Date: 20060218
  Serious: No
  Sender: FDA-Public Use
  Company Number: USA050598991

PATIENT
  Age: 15 Year
  Sex: Male
  Weight: 73 kg

DRUGS (1)
  1. STRATTERA [Suspect]
     Dosage: 80 MG DAY

REACTIONS (3)
  - INCREASED APPETITE [None]
  - VOMITING [None]
  - WEIGHT INCREASED [None]
